FAERS Safety Report 15689628 (Version 1)
Quarter: 2018Q4

REPORT INFORMATION
  Report Type: Spontaneous
  Country: US (occurrence: US)
  Receive Date: 20181125
  Receipt Date: 20181125
  Transmission Date: 20190205
  Serious: Yes (Other)
  Sender: FDA-Public Use
  Company Number: None

PATIENT
  Age: 23 Year
  Sex: Female
  Weight: 56.25 kg

DRUGS (3)
  1. CYMBALTA [Suspect]
     Active Substance: DULOXETINE HYDROCHLORIDE
     Indication: ANXIETY
     Dosage: ?          QUANTITY:1 DF DOSAGE FORM;?
     Route: 048
     Dates: start: 20180910, end: 20181119
  2. CYCLOBENAZPRINE [Suspect]
     Active Substance: CYCLOBENZAPRINE
  3. PROVIGIL [Concomitant]
     Active Substance: MODAFINIL

REACTIONS (13)
  - Night sweats [None]
  - Myalgia [None]
  - Agitation [None]
  - Restlessness [None]
  - Serotonin syndrome [None]
  - Nightmare [None]
  - Flushing [None]
  - Diarrhoea [None]
  - Constipation [None]
  - Abdominal pain upper [None]
  - Tremor [None]
  - Visual impairment [None]
  - Tachycardia [None]

NARRATIVE: CASE EVENT DATE: 20181119
